FAERS Safety Report 15358446 (Version 8)
Quarter: 2019Q3

REPORT INFORMATION
  Report Type: Report from Study
  Country: CA (occurrence: CA)
  Receive Date: 20180906
  Receipt Date: 20190919
  Transmission Date: 20191004
  Serious: Yes (Hospitalization, Other)
  Sender: FDA-Public Use
  Company Number: CA-JNJFOC-20180833104

PATIENT
  Age: 58 Year
  Sex: Male
  Weight: 84 kg

DRUGS (3)
  1. REMICADE [Suspect]
     Active Substance: INFLIXIMAB
     Route: 042
  2. REMICADE [Suspect]
     Active Substance: INFLIXIMAB
     Indication: CROHN^S DISEASE
     Route: 042
     Dates: start: 20150916, end: 20180703
  3. REMICADE [Suspect]
     Active Substance: INFLIXIMAB
     Route: 042

REACTIONS (9)
  - Pulmonary mass [Recovering/Resolving]
  - Scar [Recovering/Resolving]
  - Therapeutic product effect decreased [Unknown]
  - Drug level below therapeutic [Unknown]
  - Post procedural infection [Unknown]
  - Nasopharyngitis [Unknown]
  - Off label use [Unknown]
  - Product use issue [Unknown]
  - Basal cell carcinoma [Not Recovered/Not Resolved]

NARRATIVE: CASE EVENT DATE: 2018
